FAERS Safety Report 8420433 (Version 3)
Quarter: 2013Q2

REPORT INFORMATION
  Report Type: Spontaneous
  Country: US (occurrence: US)
  Receive Date: 20120222
  Receipt Date: 20130402
  Transmission Date: 20140414
  Serious: Yes (Hospitalization)
  Sender: FDA-Public Use
  Company Number: US-BAYER-2012-016761

PATIENT
  Age: 28 Year
  Sex: Female
  Weight: 85.26 kg

DRUGS (3)
  1. YASMIN [Suspect]
     Indication: CONTRACEPTION
     Dosage: UNK
     Dates: start: 200512, end: 200604
  2. YASMIN [Suspect]
     Indication: CONTRACEPTION
     Dosage: UNK
     Dates: start: 200706, end: 200709
  3. TYLENOL COLD [PARACETAMOL] [Concomitant]

REACTIONS (9)
  - Pulmonary embolism [None]
  - Pulmonary infarction [None]
  - Chest pain [None]
  - Pain in extremity [None]
  - Headache [None]
  - Injury [None]
  - Pain [None]
  - Emotional distress [None]
  - Pain [None]
